FAERS Safety Report 5318828-2 (Version None)
Quarter: 2007Q2

REPORT INFORMATION
  Report Type: 
  Country: None (occurrence: None)
  Receive Date: 20070508
  Receipt Date: 20070507
  Transmission Date: 20071010
  Serious: Yes (Other)
  Sender: FDA-Public Use
  Company Number: US-BRISTOL-MYERS SQUIBB COMPANY-13771175

PATIENT

DRUGS (1)
  1. MITOMYCIN [Suspect]
     Route: 047

REACTIONS (1)
  - CORNEAL BLEB [None]
